FAERS Safety Report 9565914 (Version 1)
Quarter: 2013Q3

REPORT INFORMATION
  Report Type: Report from Study
  Country: DE (occurrence: DE)
  Receive Date: 20130930
  Receipt Date: 20130930
  Transmission Date: 20140515
  Serious: Yes (Hospitalization)
  Sender: FDA-Public Use
  Company Number: DE-ROCHE-1277789

PATIENT
  Age: 45 Year
  Sex: Female
  Weight: 61 kg

DRUGS (1)
  1. TRASTUZUMAB EMTANSINE [Suspect]
     Indication: BREAST CANCER
     Dosage: 3.6 MG/KG, LAST DOSE PRIOR TO SAE 05/SEP/2013
     Route: 042
     Dates: start: 20130704

REACTIONS (1)
  - General physical health deterioration [Recovered/Resolved]
